FAERS Safety Report 23584437 (Version 2)
Quarter: 2024Q1

REPORT INFORMATION
  Report Type: Report from Study
  Country: CA (occurrence: CA)
  Receive Date: 20240301
  Receipt Date: 20240327
  Transmission Date: 20240409
  Serious: Yes (Other)
  Sender: FDA-Public Use
  Company Number: CA-TAKEDA-2022TUS061413

PATIENT
  Age: 60 Year
  Sex: Female

DRUGS (27)
  1. LANADELUMAB [Suspect]
     Active Substance: LANADELUMAB
     Indication: Hereditary angioedema with normal C1 esterase inhibitor
     Dosage: 2 DOSAGE FORM, Q2WEEKS
     Route: 050
     Dates: start: 20211127
  2. LANADELUMAB [Suspect]
     Active Substance: LANADELUMAB
     Indication: Mast cell activation syndrome
     Dosage: UNK, Q2WEEKS
     Route: 058
  3. LANADELUMAB [Suspect]
     Active Substance: LANADELUMAB
     Dosage: 2 DOSAGE FORM, Q2WEEKS
     Route: 050
  4. LANADELUMAB [Suspect]
     Active Substance: LANADELUMAB
     Dosage: UNK, Q2WEEKS
     Route: 058
  5. CALCIUM CITRATE [Concomitant]
     Active Substance: CALCIUM CITRATE
     Dosage: 1890 MILLIGRAM
     Route: 048
  6. CORTEF [Concomitant]
     Active Substance: HYDROCORTISONE
     Dosage: 22.5 MILLIGRAM, QD
     Route: 048
  7. CORTEF [Concomitant]
     Active Substance: HYDROCORTISONE
     Dosage: 17.5 MILLIGRAM
     Route: 065
  8. SOLU-CORTEF [Concomitant]
     Active Substance: HYDROCORTISONE SODIUM SUCCINATE
     Dosage: UNK
     Route: 065
  9. SPIRONOLACTONE [Concomitant]
     Active Substance: SPIRONOLACTONE
     Dosage: 12.5 MILLIGRAM, BID
     Route: 048
  10. MIRABEGRON [Concomitant]
     Active Substance: MIRABEGRON
     Dosage: 50 MILLIGRAM, QD
     Route: 065
  11. METOLAZONE [Concomitant]
     Active Substance: METOLAZONE
     Dosage: 2.5 MILLIGRAM, Q72H
     Route: 065
  12. DYMISTA [Concomitant]
     Active Substance: AZELASTINE HYDROCHLORIDE\FLUTICASONE PROPIONATE
     Dosage: UNK UNK, BID
     Route: 065
  13. FAMOTIDINE [Concomitant]
     Active Substance: FAMOTIDINE
     Dosage: 20 MILLIGRAM, BID
     Route: 065
  14. KETOTIFEN [Concomitant]
     Active Substance: KETOTIFEN
     Dosage: 4 MILLIGRAM, BID
     Route: 065
  15. LABIXTEN [Concomitant]
     Dosage: 40 MILLIGRAM, BID
     Route: 065
  16. LASIX [Concomitant]
     Active Substance: FUROSEMIDE
     Dosage: 40 MILLIGRAM, BID
     Route: 065
  17. BROMAZEPAM [Concomitant]
     Active Substance: BROMAZEPAM
     Dosage: 3 MILLIGRAM
     Route: 065
  18. CROMOLYN SODIUM [Concomitant]
     Active Substance: CROMOLYN SODIUM
     Dosage: 300 MILLIGRAM, QID
     Route: 065
  19. RABEPRAZOLE SODIUM [Concomitant]
     Active Substance: RABEPRAZOLE SODIUM
     Dosage: 20 MILLIGRAM, BID
     Route: 065
  20. PLAQUENIL [Concomitant]
     Active Substance: HYDROXYCHLOROQUINE SULFATE
     Dosage: 400 MILLIGRAM, QD
     Route: 065
  21. KCL [Concomitant]
     Active Substance: POTASSIUM CHLORIDE
     Dosage: 30 MILLILITER, TID
     Route: 065
  22. SINGULAIR [Concomitant]
     Active Substance: MONTELUKAST SODIUM
     Dosage: 10 MILLIGRAM, BID
     Route: 065
  23. XYZAL [Concomitant]
     Active Substance: LEVOCETIRIZINE DIHYDROCHLORIDE
     Dosage: 5 MILLIGRAM, QD
     Route: 065
  24. ZYRTEC [Concomitant]
     Active Substance: CETIRIZINE HYDROCHLORIDE
     Dosage: 10 MILLIGRAM, QD
     Route: 065
  25. OMEGA 3 [Concomitant]
     Active Substance: CAPSAICIN
     Route: 065
  26. PRASTERONE [Concomitant]
     Active Substance: PRASTERONE
     Dosage: 25 MILLIGRAM, QD
     Route: 065
  27. FIRAZYR [Concomitant]
     Active Substance: ICATIBANT ACETATE
     Dosage: UNK
     Route: 065

REACTIONS (11)
  - Mast cell activation syndrome [Unknown]
  - Stress [Unknown]
  - Fatigue [Unknown]
  - Sacroiliitis [Recovering/Resolving]
  - Bronchitis [Not Recovered/Not Resolved]
  - Blood potassium abnormal [Not Recovered/Not Resolved]
  - Dyspnoea [Not Recovered/Not Resolved]
  - Pruritus [Not Recovered/Not Resolved]
  - Hereditary angioedema [Not Recovered/Not Resolved]
  - Off label use [Unknown]
  - Inappropriate schedule of product administration [Unknown]

NARRATIVE: CASE EVENT DATE: 20211127
